FAERS Safety Report 5933695-1 (Version None)
Quarter: 2008Q4

REPORT INFORMATION
  Report Type: 
  Country: None (occurrence: None)
  Receive Date: 20081027
  Receipt Date: 20081017
  Transmission Date: 20090506
  Serious: Yes (Hospitalization)
  Sender: FDA-Public Use
  Company Number: 2008AP002790

PATIENT
  Age: 88 Year
  Sex: Male

DRUGS (5)
  1. SERTRALINE HYDROCHLORIDE [Suspect]
     Indication: DEPRESSION
     Dosage: 50 MG;TAB;PO;QD; 50 MG;QD
     Route: 048
     Dates: start: 20071201, end: 20081015
  2. ACETYLSALICYLIC ACID SRT [Concomitant]
  3. FOLIC ACID [Concomitant]
  4. PERINDOPRIL ERBUMINE [Concomitant]
  5. SERTRALINE HYDROCHLORIDE [Concomitant]

REACTIONS (12)
  - BLOOD ALBUMIN DECREASED [None]
  - BLOOD CHOLESTEROL DECREASED [None]
  - BLOOD SODIUM DECREASED [None]
  - CALCIUM DEFICIENCY [None]
  - CONJUNCTIVITIS [None]
  - FATIGUE [None]
  - GASTROINTESTINAL DISORDER [None]
  - GLOBULINS INCREASED [None]
  - HYPOTENSION [None]
  - LYMPHOMA [None]
  - OEDEMA PERIPHERAL [None]
  - RASH [None]
